FAERS Safety Report 24134526 (Version 2)
Quarter: 2024Q3

REPORT INFORMATION
  Report Type: Spontaneous
  Country: US (occurrence: US)
  Receive Date: 20240725
  Receipt Date: 20240831
  Transmission Date: 20241016
  Serious: Yes (Life-Threatening, Hospitalization, Other)
  Sender: CONCORD BIOTECH
  Company Number: US-CBL-002703

PATIENT
  Age: 13 Year
  Sex: Male

DRUGS (6)
  1. TACROLIMUS [Suspect]
     Active Substance: TACROLIMUS
     Indication: Prophylaxis against transplant rejection
     Route: 065
  2. CETIRIZINE [Concomitant]
     Active Substance: CETIRIZINE HYDROCHLORIDE
     Indication: Prophylaxis of nausea and vomiting
     Route: 048
  3. ONDANSETRON [Concomitant]
     Active Substance: ONDANSETRON
     Indication: Prophylaxis of nausea and vomiting
     Dosage: AS NEEDED
     Route: 048
  4. RIZATRIPTAN [Concomitant]
     Active Substance: RIZATRIPTAN
     Indication: Headache
     Dosage: AS NEEDED
     Route: 065
  5. TACROLIMUS [Suspect]
     Active Substance: TACROLIMUS
     Indication: Prophylaxis against transplant rejection
     Dosage: REDUCED FROM 2 MG TO 1 MG
     Route: 065
  6. TACROLIMUS [Suspect]
     Active Substance: TACROLIMUS
     Indication: Prophylaxis against transplant rejection
     Dosage: RESTARTED ON DAY 6
     Route: 065

REACTIONS (5)
  - Influenza [Unknown]
  - Acute kidney injury [Unknown]
  - Drug level increased [Unknown]
  - Epstein-Barr virus infection [Recovering/Resolving]
  - Post transplant lymphoproliferative disorder [Unknown]
